FAERS Safety Report 5210640-8 (Version None)
Quarter: 2006Q4

REPORT INFORMATION
  Report Type: 
  Country: None (occurrence: None)
  Receive Date: 20061106
  Receipt Date: 20060828
  Transmission Date: 20070319
  Serious: No
  Sender: FDA-Public Use
  Company Number: VNL_0191_2006

PATIENT
  Age: 68 Year
  Sex: Male
  Weight: 89.8122 kg

DRUGS (5)
  1. APOKYN [Suspect]
     Indication: MUSCULOSKELETAL STIFFNESS
     Dosage: 0.2 ML TID SC
     Route: 058
     Dates: start: 20060801
  2. APOKYN [Suspect]
     Indication: PARKINSON'S DISEASE
     Dosage: 0.2 ML TID SC
     Route: 058
     Dates: start: 20060801
  3. APOKYN [Suspect]
     Indication: MUSCULOSKELETAL STIFFNESS
     Dosage: DF SC
     Route: 058
     Dates: start: 20060801
  4. APOKYN [Suspect]
     Indication: PARKINSON'S DISEASE
     Dosage: DF SC
     Route: 058
     Dates: start: 20060801
  5. SINEMET [Concomitant]

REACTIONS (1)
  - HALLUCINATION, VISUAL [None]
